FAERS Safety Report 19261754 (Version 2)
Quarter: 2021Q2

REPORT INFORMATION
  Report Type: Report from Study
  Country: US (occurrence: US)
  Receive Date: 20210515
  Receipt Date: 20210603
  Transmission Date: 20210717
  Serious: Yes (Other)
  Sender: FDA-Public Use
  Company Number: US-TAKEDA-2021TUS029469

PATIENT
  Sex: Female
  Weight: 81 kg

DRUGS (19)
  1. METOPROLOL. [Concomitant]
     Active Substance: METOPROLOL
  2. ALFA 1?ANTITRYPSIN [Suspect]
     Active Substance: .ALPHA.1-PROTEINASE INHIBITOR HUMAN
     Indication: ALPHA-1 ANTITRYPSIN DEFICIENCY
     Dosage: 60 MILLIGRAM/KILOGRAM, 1/WEEK
     Route: 042
     Dates: start: 20210130
  3. ALFA 1?ANTITRYPSIN [Suspect]
     Active Substance: .ALPHA.1-PROTEINASE INHIBITOR HUMAN
     Dosage: 60 MILLIGRAM/KILOGRAM, 1/WEEK
     Route: 042
     Dates: start: 20210224
  4. DIPHENHYDRAMINE. [Concomitant]
     Active Substance: DIPHENHYDRAMINE
  5. EPINEPHRINE. [Concomitant]
     Active Substance: EPINEPHRINE
  6. ASPIRIN (E.C.) [Concomitant]
     Active Substance: ASPIRIN
  7. ALFA 1?ANTITRYPSIN [Suspect]
     Active Substance: .ALPHA.1-PROTEINASE INHIBITOR HUMAN
     Dosage: 60 MILLIGRAM/KILOGRAM, 1/WEEK
     Route: 042
     Dates: start: 20210224
  8. VENTOLINE [Concomitant]
     Active Substance: ALBUTEROL
  9. ALFA 1?ANTITRYPSIN [Suspect]
     Active Substance: .ALPHA.1-PROTEINASE INHIBITOR HUMAN
     Indication: ALPHA-1 ANTITRYPSIN DEFICIENCY
     Dosage: 60 MILLIGRAM/KILOGRAM, 1/WEEK
     Route: 042
     Dates: start: 20210130
  10. XANAX [Concomitant]
     Active Substance: ALPRAZOLAM
  11. ATORVASTATIN [Concomitant]
     Active Substance: ATORVASTATIN
  12. ALBUTEROL. [Concomitant]
     Active Substance: ALBUTEROL
  13. BREO ELLIPTA [Concomitant]
     Active Substance: FLUTICASONE FUROATE\VILANTEROL TRIFENATATE
  14. LIDOCAINE/PRILOCAINE [Concomitant]
     Active Substance: LIDOCAINE\PRILOCAINE
  15. AMLODIPINE [Concomitant]
     Active Substance: AMLODIPINE BESYLATE
  16. FAMOTIDINE. [Concomitant]
     Active Substance: FAMOTIDINE
  17. THEOPHYLLINE [Concomitant]
     Active Substance: THEOPHYLLINE ANHYDROUS
  18. HEPARIN [Concomitant]
     Active Substance: HEPARIN SODIUM
  19. SODIUM CHLORIDE. [Concomitant]
     Active Substance: SODIUM CHLORIDE

REACTIONS (2)
  - Cholecystectomy [Unknown]
  - Eye haemorrhage [Unknown]
